FAERS Safety Report 5489632-X (Version None)
Quarter: 2007Q4

REPORT INFORMATION
  Report Type: 
  Country: None (occurrence: None)
  Receive Date: 20071018
  Receipt Date: 20071016
  Transmission Date: 20080405
  Serious: Yes (Hospitalization, Other)
  Sender: FDA-Public Use
  Company Number: A0684734A

PATIENT
  Age: 42 Year
  Sex: Female
  Weight: 127.3 kg

DRUGS (5)
  1. LAMICTAL [Suspect]
     Indication: BIPOLAR DISORDER
     Dosage: 50MG PER DAY
     Route: 048
     Dates: start: 20070831, end: 20070926
  2. PAXIL [Suspect]
     Indication: DRUG USE FOR UNKNOWN INDICATION
     Dosage: 62.5MG UNKNOWN
     Route: 065
  3. REQUIP [Suspect]
     Indication: RESTLESS LEGS SYNDROME
     Dosage: 1MG UNKNOWN
     Route: 048
     Dates: start: 20061101
  4. TRAZODONE HCL [Suspect]
     Indication: SLEEP DISORDER
     Dosage: 400MG UNKNOWN
     Route: 048
     Dates: start: 20041101
  5. BACTRIM [Concomitant]
     Dates: start: 20070918, end: 20070926

REACTIONS (1)
  - RASH [None]
